FAERS Safety Report 19229801 (Version 1)
Quarter: 2021Q2

REPORT INFORMATION
  Report Type: Spontaneous
  Country: FR (occurrence: FR)
  Receive Date: 20210507
  Receipt Date: 20210507
  Transmission Date: 20210717
  Serious: Yes (Other)
  Sender: FDA-Public Use
  Company Number: FR-DRREDDYS-USA/FRA/21/0135209

PATIENT
  Age: 68 Year
  Sex: Male

DRUGS (4)
  1. AZACITIDINE. [Suspect]
     Active Substance: AZACITIDINE
     Dosage: FIVE CYCLES
  2. TRETINOIN. [Suspect]
     Active Substance: TRETINOIN
     Dosage: FIVE CYCLES
  3. TRETINOIN. [Suspect]
     Active Substance: TRETINOIN
     Indication: ACUTE MYELOID LEUKAEMIA
     Dosage: DAILY FOR TWO CONSECUTIVE WEEKS EACH MONTH. TWO CYCLES WERE RECEIVED.
  4. AZACITIDINE. [Suspect]
     Active Substance: AZACITIDINE
     Indication: ACUTE MYELOID LEUKAEMIA
     Dosage: 75 MG/M2/DAY FOR SEVEN CONSECUTIVE DAYS WITH CYCLES OF 28 DAYS. TWO CYCLES WERE RECEIVED.

REACTIONS (2)
  - Drug ineffective [Unknown]
  - Acute myeloid leukaemia recurrent [Unknown]
